FAERS Safety Report 23408988 (Version 1)
Quarter: 2024Q1

REPORT INFORMATION
  Report Type: Spontaneous
  Country: US (occurrence: US)
  Receive Date: 20240117
  Receipt Date: 20240117
  Transmission Date: 20240410
  Serious: Yes (Other)
  Sender: FDA-Public Use
  Company Number: US-002147023-NVSC2024US008731

PATIENT
  Age: 39 Year
  Sex: Female

DRUGS (1)
  1. NETSPOT [Suspect]
     Active Substance: DOTATATE GALLIUM GA-68
     Indication: Product used for unknown indication
     Dosage: UNK (4.56, ONCE PER SCAN)
     Route: 065

REACTIONS (1)
  - Carcinoid crisis [Unknown]

NARRATIVE: CASE EVENT DATE: 20230125
